FAERS Safety Report 18586946 (Version 1)
Quarter: 2020Q4

REPORT INFORMATION
  Report Type: Spontaneous
  Country: US (occurrence: US)
  Receive Date: 20201207
  Receipt Date: 20201207
  Transmission Date: 20210114
  Serious: Yes (Hospitalization)
  Sender: FDA-Public Use
  Company Number: US-ROCHE-2476034

PATIENT
  Sex: Female
  Weight: 65.83 kg

DRUGS (4)
  1. MELOXICAM. [Concomitant]
     Active Substance: MELOXICAM
     Dosage: PRN USAGE 15MG DAILY AS NEEDED
     Route: 048
     Dates: start: 2019
  2. VALIUM [Suspect]
     Active Substance: DIAZEPAM
     Indication: ANXIETY
     Dosage: NO
     Route: 048
     Dates: start: 1986, end: 2018
  3. VALIUM [Suspect]
     Active Substance: DIAZEPAM
     Dosage: YES
     Route: 048
     Dates: start: 20180101
  4. MELOXICAM. [Concomitant]
     Active Substance: MELOXICAM
     Indication: PAIN
     Dosage: NO
     Route: 048
     Dates: start: 2017, end: 2019

REACTIONS (3)
  - Weight decreased [Recovered/Resolved]
  - Drug ineffective [Unknown]
  - Road traffic accident [Unknown]

NARRATIVE: CASE EVENT DATE: 2017
